FAERS Safety Report 8840647 (Version 3)
Quarter: 2013Q4

REPORT INFORMATION
  Report Type: Report from Study
  Country: DK (occurrence: DK)
  Receive Date: 20121015
  Receipt Date: 20131119
  Transmission Date: 20140711
  Serious: Yes (Hospitalization)
  Sender: FDA-Public Use
  Company Number: DK-PFIZER INC-2012252942

PATIENT
  Age: 40 Year
  Sex: Female
  Weight: 93 kg

DRUGS (8)
  1. EPIRUBICIN HCL [Suspect]
     Indication: HER-2 POSITIVE BREAST CANCER
     Dosage: 190 MG, EVERY 3 WEEKS
     Route: 042
     Dates: start: 20120604
  2. EPIRUBICIN HCL [Suspect]
     Indication: BREAST CANCER
  3. FLUOROURACIL [Suspect]
     Indication: HER-2 POSITIVE BREAST CANCER
     Dosage: 1050 MG, EVERY 3 WEEKS
     Route: 042
     Dates: start: 20120604
  4. FLUOROURACIL [Suspect]
     Indication: BREAST CANCER
  5. SENDOXAN [Suspect]
     Indication: HER-2 POSITIVE BREAST CANCER
     Dosage: 1050 MG, EVERY 3 WEEKS
     Route: 042
     Dates: start: 20120604, end: 20120626
  6. SENDOXAN [Suspect]
     Indication: BREAST CANCER
     Dosage: 1050 MG, EVERY 3 WEEKS
     Route: 042
     Dates: start: 20120702
  7. ADALAT [Concomitant]
     Indication: PRODUCT USED FOR UNKNOWN INDICATION
     Dosage: 60 MG, 1X/DAY
     Route: 065
     Dates: start: 20081007
  8. ELTROXIN [Concomitant]
     Indication: PRODUCT USED FOR UNKNOWN INDICATION
     Dosage: 50 UG, UNK
     Route: 065
     Dates: start: 20110913

REACTIONS (1)
  - Skin infection [Recovered/Resolved]
